FAERS Safety Report 14749280 (Version 1)
Quarter: 2018Q2

REPORT INFORMATION
  Report Type: Spontaneous
  Country: US (occurrence: US)
  Receive Date: 20180411
  Receipt Date: 20180411
  Transmission Date: 20180711
  Serious: No
  Sender: FDA-Public Use
  Company Number: US-AMGEN-USASP2018028123

PATIENT
  Age: 70 Year
  Sex: Female

DRUGS (6)
  1. BORON [Concomitant]
     Active Substance: BORON
     Dosage: UNK
  2. CALCIUM [Concomitant]
     Active Substance: CALCIUM
     Dosage: UNK
  3. MAGNESIUM [Concomitant]
     Active Substance: MAGNESIUM
     Dosage: UNK
  4. PROLIA [Suspect]
     Active Substance: DENOSUMAB
     Indication: OSTEOPOROSIS POSTMENOPAUSAL
     Dosage: 60 MG, Q6MO
     Route: 065
  5. K1 [Concomitant]
  6. MANGANESE [Concomitant]
     Active Substance: MANGANESE\MANGANESE CHLORIDE

REACTIONS (6)
  - Vitamin D decreased [Unknown]
  - Haemangioma of liver [Not Recovered/Not Resolved]
  - Arthralgia [Recovered/Resolved]
  - Malabsorption [Unknown]
  - Dyspepsia [Unknown]
  - Bone pain [Recovered/Resolved]
